FAERS Safety Report 6829214-8 (Version None)
Quarter: 2010Q3

REPORT INFORMATION
  Report Type: 
  Country: None (occurrence: None)
  Receive Date: 20100709
  Receipt Date: 20100625
  Transmission Date: 20110219
  Serious: Yes (Other)
  Sender: FDA-Public Use
  Company Number: GR-AMGEN-QUU420983

PATIENT
  Age: 65 Year
  Sex: Female

DRUGS (5)
  1. ENBREL [Suspect]
     Indication: PSORIATIC ARTHROPATHY
     Route: 058
     Dates: start: 20080101, end: 20090101
  2. ENBREL [Suspect]
     Route: 058
     Dates: start: 20100201, end: 20100601
  3. BONDRONAT [Concomitant]
  4. NEORAL [Concomitant]
     Dosage: UNSPECIFIED
     Dates: end: 20090101
  5. NEORAL [Concomitant]
     Dosage: UNSPECIFIED
     Dates: start: 20100201

REACTIONS (1)
  - INTRAOCULAR MELANOMA [None]
